FAERS Safety Report 9254992 (Version 2)
Quarter: 2013Q2

REPORT INFORMATION
  Report Type: Spontaneous
  Country: DE (occurrence: DE)
  Receive Date: 20130425
  Receipt Date: 20130515
  Transmission Date: 20140414
  Serious: Yes (Other)
  Sender: FDA-Public Use
  Company Number: DE-JNJFOC-20130410329

PATIENT
  Age: 52 Year
  Sex: Female

DRUGS (4)
  1. REMICADE [Suspect]
     Indication: CROHN^S DISEASE
     Route: 042
     Dates: start: 20110503
  2. REMICADE [Suspect]
     Indication: CROHN^S DISEASE
     Dosage: APPROXIMATE TOTAL NUMBER OF INFUSION RECEIVED IS 14.
     Route: 042
     Dates: start: 20130416, end: 20130416
  3. TAVOR [Concomitant]
     Indication: PREMEDICATION
     Route: 065
  4. PREDNISOLONE [Concomitant]
     Indication: PREMEDICATION
     Route: 065

REACTIONS (6)
  - Infusion related reaction [Unknown]
  - Dyspnoea [Recovered/Resolved]
  - Bronchospasm [Recovered/Resolved]
  - Suffocation feeling [Unknown]
  - Oropharyngeal pain [Recovered/Resolved]
  - Rash [Recovered/Resolved]
